FAERS Safety Report 7575170-7 (Version None)
Quarter: 2011Q2

REPORT INFORMATION
  Report Type: 
  Country: None (occurrence: None)
  Receive Date: 20110627
  Receipt Date: 20110620
  Transmission Date: 20111010
  Serious: Yes (Other)
  Sender: FDA-Public Use
  Company Number: GB-PFIZER INC-2011135485

PATIENT
  Age: 61 Year
  Sex: Female

DRUGS (4)
  1. NEURONTIN [Suspect]
     Dosage: 600 MG
     Dates: start: 20110101
  2. NEURONTIN [Suspect]
     Dosage: 1800MG (6 CAPSULES OF 300MG)
     Dates: start: 20110101
  3. NEURONTIN [Suspect]
     Indication: NEURALGIA
     Dosage: 300 MG
     Dates: start: 20110101
  4. NEURONTIN [Suspect]
     Dosage: 2400MG (8CAPSULES OF 300MG)
     Dates: start: 20110101

REACTIONS (10)
  - HALLUCINATION [None]
  - HYPOPHAGIA [None]
  - PAIN [None]
  - SEDATION [None]
  - DYSGEUSIA [None]
  - LOSS OF CONSCIOUSNESS [None]
  - NAUSEA [None]
  - DRUG INEFFECTIVE [None]
  - APTYALISM [None]
  - DRY MOUTH [None]
